FAERS Safety Report 14858820 (Version 2)
Quarter: 2018Q2

REPORT INFORMATION
  Report Type: Spontaneous
  Country: FR (occurrence: FR)
  Receive Date: 20180508
  Receipt Date: 20180618
  Transmission Date: 20180711
  Serious: Yes (Congenital Anomaly)
  Sender: FDA-Public Use
  Company Number: PHHY2014FR185061

PATIENT
  Sex: Female
  Weight: 2.62 kg

DRUGS (2)
  1. TEGRETOL [Suspect]
     Active Substance: CARBAMAZEPINE
     Indication: PRODUCT USED FOR UNKNOWN INDICATION
     Dosage: UNK
     Route: 064
  2. DEPAKINE CHRONO [Suspect]
     Active Substance: VALPROATE SODIUM
     Indication: EPILEPSY
     Dosage: 1250 MG, QD
     Route: 064
     Dates: start: 199604, end: 19970117

REACTIONS (22)
  - Disturbance in attention [Unknown]
  - Psychomotor hyperactivity [Not Recovered/Not Resolved]
  - Developmental delay [Not Recovered/Not Resolved]
  - Adjustment disorder [Unknown]
  - Sleep disorder [Unknown]
  - Memory impairment [Unknown]
  - Foot deformity [Unknown]
  - Motor dysfunction [Unknown]
  - Limb malformation [Unknown]
  - Dysmorphism [Unknown]
  - Abnormal behaviour [Not Recovered/Not Resolved]
  - Mental disorder [Unknown]
  - Anxiety [Not Recovered/Not Resolved]
  - Ill-defined disorder [Unknown]
  - Speech disorder developmental [Not Recovered/Not Resolved]
  - Scoliosis [Unknown]
  - Visual impairment [Unknown]
  - Educational problem [Unknown]
  - Foetal exposure during pregnancy [Unknown]
  - Intellectual disability [Not Recovered/Not Resolved]
  - Intellectual disability [Not Recovered/Not Resolved]
  - Fear [Unknown]

NARRATIVE: CASE EVENT DATE: 1997
